FAERS Safety Report 25571400 (Version 1)
Quarter: 2025Q3

REPORT INFORMATION
  Report Type: Report from Study
  Country: GB (occurrence: GB)
  Receive Date: 20250717
  Receipt Date: 20250717
  Transmission Date: 20251020
  Serious: Yes (Other)
  Sender: MYLAN
  Company Number: GB-MYLANLABS-2025M1059298

PATIENT
  Age: 93 Year
  Sex: Female

DRUGS (1)
  1. METHOTREXATE [Suspect]
     Active Substance: METHOTREXATE
     Indication: Aplasia pure red cell
     Dosage: 5 MILLIGRAM, QW

REACTIONS (3)
  - Thrombocytopenia [Unknown]
  - Nausea [Unknown]
  - Off label use [Unknown]
